FAERS Safety Report 6267558-1 (Version None)
Quarter: 2009Q3

REPORT INFORMATION
  Report Type: 
  Country: None (occurrence: None)
  Receive Date: 20090710
  Receipt Date: 20090629
  Transmission Date: 20100115
  Serious: Yes (Other)
  Sender: FDA-Public Use
  Company Number: 230274K09CAN

PATIENT
  Sex: Female

DRUGS (2)
  1. REBIF [Suspect]
     Indication: RELAPSING-REMITTING MULTIPLE SCLEROSIS
     Dosage: 44 MCG, 3 IN 1 WEEKS, SUBCUTANEOUS
     Route: 058
     Dates: start: 20051118, end: 20080901
  2. METHOTREXATE (METHOTREXATE /00113801/) [Concomitant]

REACTIONS (3)
  - GAIT DISTURBANCE [None]
  - NEUROMYELITIS OPTICA [None]
  - VISUAL ACUITY REDUCED [None]
